FAERS Safety Report 15865652 (Version 1)
Quarter: 2019Q1

REPORT INFORMATION
  Report Type: Spontaneous
  Country: CA (occurrence: CA)
  Receive Date: 20190125
  Receipt Date: 20190125
  Transmission Date: 20190417
  Serious: Yes (Other)
  Sender: FDA-Public Use
  Company Number: CA-ROCHE-2248200

PATIENT
  Sex: Female

DRUGS (17)
  1. DIPHENHYDRAMINE HCL [Concomitant]
     Active Substance: DIPHENHYDRAMINE HYDROCHLORIDE
     Indication: PREMEDICATION
     Route: 048
     Dates: start: 20190104
  2. CELLCEPT [Suspect]
     Active Substance: MYCOPHENOLATE MOFETIL\MYCOPHENOLATE MOFETIL HYDROCHLORIDE
     Indication: PRODUCT USED FOR UNKNOWN INDICATION
     Route: 065
  3. ACETAMINOPHEN. [Concomitant]
     Active Substance: ACETAMINOPHEN
     Indication: PREMEDICATION
     Route: 048
     Dates: start: 20190104
  4. URSODIOL. [Concomitant]
     Active Substance: URSODIOL
  5. PANTOPRAZOLE [Concomitant]
     Active Substance: PANTOPRAZOLE
  6. AMLODIPINE [Concomitant]
     Active Substance: AMLODIPINE BESYLATE
  7. RAMIPRIL. [Concomitant]
     Active Substance: RAMIPRIL
  8. ESCITALOPRAM [Concomitant]
     Active Substance: ESCITALOPRAM OXALATE
  9. TRAMADOL. [Concomitant]
     Active Substance: TRAMADOL
  10. RITUXAN [Suspect]
     Active Substance: RITUXIMAB
     Indication: SJOGREN^S SYNDROME
     Route: 042
     Dates: start: 20190104
  11. ACYCLOVIR. [Concomitant]
     Active Substance: ACYCLOVIR
  12. VITAMIN C [Concomitant]
     Active Substance: ASCORBIC ACID
  13. RITUXAN [Suspect]
     Active Substance: RITUXIMAB
     Indication: RAYNAUD^S PHENOMENON
  14. METHYLPREDNISOLONE. [Concomitant]
     Active Substance: METHYLPREDNISOLONE
     Indication: PREMEDICATION
     Route: 042
     Dates: start: 20190104
  15. ALENDRONATE [Concomitant]
     Active Substance: ALENDRONATE SODIUM
  16. NYSTATIN. [Concomitant]
     Active Substance: NYSTATIN
  17. METHOTREXATE. [Concomitant]
     Active Substance: METHOTREXATE

REACTIONS (3)
  - Drug hypersensitivity [Not Recovered/Not Resolved]
  - Mixed connective tissue disease [Unknown]
  - Primary biliary cholangitis [Unknown]
